FAERS Safety Report 13424769 (Version 2)
Quarter: 2018Q1

REPORT INFORMATION
  Report Type: Report from Study
  Country: US (occurrence: US)
  Receive Date: 20170410
  Receipt Date: 20180108
  Transmission Date: 20180508
  Serious: No
  Sender: FDA-Public Use
  Company Number: US-RETROPHIN, INC.-2017RTN00005

PATIENT
  Age: 8 Year
  Sex: Female

DRUGS (7)
  1. CHOLBAM [Suspect]
     Active Substance: CHOLIC ACID
     Dosage: 50 MG, 2X/DAY
     Dates: start: 20170227, end: 20170305
  2. CHOLBAM [Suspect]
     Active Substance: CHOLIC ACID
     Dosage: 150 MG, 2X/DAY
     Route: 048
     Dates: start: 20170313, end: 2017
  3. CHOLBAM [Suspect]
     Active Substance: CHOLIC ACID
     Dosage: 100 MG, 2X/DAY
     Dates: start: 20170306, end: 20170312
  4. VEGAN DHA [Concomitant]
  5. CHOLBAM [Suspect]
     Active Substance: CHOLIC ACID
     Dosage: 100 MG, 1X/DAY
     Dates: start: 2017
  6. CHOLBAM [Suspect]
     Active Substance: CHOLIC ACID
     Indication: REFSUM^S DISEASE
     Dosage: 250 MG, 1X/DAY
     Dates: start: 2017
  7. CHOLBAM [Suspect]
     Active Substance: CHOLIC ACID
     Indication: REFSUM^S DISEASE
     Dosage: 350 MG, ONCE
     Dates: start: 20170225, end: 20170225

REACTIONS (3)
  - Diarrhoea [Unknown]
  - Abdominal discomfort [Unknown]
  - Vomiting [Recovered/Resolved]

NARRATIVE: CASE EVENT DATE: 2017
